FAERS Safety Report 6640467-1 (Version None)
Quarter: 2010Q1

REPORT INFORMATION
  Report Type: 
  Country: None (occurrence: None)
  Receive Date: 20100318
  Receipt Date: 20100306
  Transmission Date: 20100710
  Serious: Yes (Other)
  Sender: FDA-Public Use
  Company Number: HK-PFIZER INC-2010029990

PATIENT
  Sex: Female

DRUGS (1)
  1. CYTOTEC [Suspect]
     Indication: SURGERY
     Dosage: 200 MCG, UNK, 2X/DAY
     Route: 060

REACTIONS (2)
  - OEDEMA PERIPHERAL [None]
  - PALPITATIONS [None]
